FAERS Safety Report 12852767 (Version 1)
Quarter: 2016Q4

REPORT INFORMATION
  Report Type: Spontaneous
  Country: IL (occurrence: IL)
  Receive Date: 20161017
  Receipt Date: 20161017
  Transmission Date: 20170207
  Serious: Yes (Other)
  Sender: FDA-Public Use
  Company Number: IL-PFIZER INC-2016428131

PATIENT
  Age: 68 Year
  Sex: Male

DRUGS (9)
  1. RESPRIM [Concomitant]
  2. NEXIUM [Concomitant]
     Active Substance: ESOMEPRAZOLE MAGNESIUM
  3. VORICONAZOLE. [Concomitant]
     Active Substance: VORICONAZOLE
  4. ACYCLOVIR /00587301/ [Concomitant]
     Active Substance: ACYCLOVIR
  5. CALCIUM AND VIT D [Concomitant]
     Active Substance: CALCIUM\VITAMIN D
  6. CIPROFLOXACIN. [Concomitant]
     Active Substance: CIPROFLOXACIN
  7. CYTARABINE. [Suspect]
     Active Substance: CYTARABINE
     Indication: ACUTE MYELOID LEUKAEMIA
     Dosage: 1 GR/M2X2/DX4D (HIGH DOSE)
     Dates: start: 201607
  8. MITOXANTRONE [Suspect]
     Active Substance: MITOXANTRONE HYDROCHLORIDE
     Indication: ACUTE MYELOID LEUKAEMIA
     Dosage: 30 MG/M2, 2X/DAY
     Dates: start: 201607
  9. DIMITONE [Concomitant]

REACTIONS (5)
  - Acute kidney injury [Recovered/Resolved]
  - Blood antidiuretic hormone [Recovering/Resolving]
  - Chronic graft versus host disease [Unknown]
  - Acute graft versus host disease [Unknown]
  - Cardiomyopathy [Unknown]
